FAERS Safety Report 6441434-3 (Version None)
Quarter: 2009Q4

REPORT INFORMATION
  Report Type: 
  Country: None (occurrence: None)
  Receive Date: 20091116
  Receipt Date: 20091111
  Transmission Date: 20100525
  Serious: Yes (Hospitalization)
  Sender: FDA-Public Use
  Company Number: A0759194A

PATIENT
  Age: 44 Year
  Sex: Male
  Weight: 108.2 kg

DRUGS (16)
  1. AVANDIA [Suspect]
     Dosage: 8MG PER DAY
     Route: 048
     Dates: start: 20060101, end: 20070529
  2. GLUCOPHAGE [Concomitant]
     Dates: start: 20040101
  3. METFORMIN HCL [Concomitant]
     Dates: start: 20040101
  4. COUMADIN [Concomitant]
  5. ADVAIR DISKUS 100/50 [Concomitant]
  6. ALBUTEROL [Concomitant]
  7. MEVACOR [Concomitant]
  8. PRILOSEC [Concomitant]
  9. ZOLOFT [Concomitant]
  10. REMERON [Concomitant]
  11. ABILIFY [Concomitant]
  12. KLONOPIN [Concomitant]
  13. ALDACTONE [Concomitant]
  14. ZYRTEC [Concomitant]
  15. SOMA [Concomitant]
  16. RHINOCORT [Concomitant]

REACTIONS (6)
  - ANXIETY [None]
  - CARDIAC DISORDER [None]
  - FATIGUE [None]
  - MYOCARDIAL INFARCTION [None]
  - MYOCARDIAL ISCHAEMIA [None]
  - OEDEMA [None]
